FAERS Safety Report 6697200-7 (Version None)
Quarter: 2010Q2

REPORT INFORMATION
  Report Type: 
  Country: None (occurrence: None)
  Receive Date: 20100426
  Receipt Date: 20100416
  Transmission Date: 20101027
  Serious: Yes (Other)
  Sender: FDA-Public Use
  Company Number: BR-PFIZER INC-2010049437

PATIENT
  Age: 46 Year
  Sex: Female

DRUGS (2)
  1. LIPITOR [Suspect]
     Dosage: UNK
     Route: 048
  2. CITALOR [Suspect]
     Dosage: UNK
     Route: 048

REACTIONS (2)
  - ARTERIAL RESTENOSIS [None]
  - INFARCTION [None]
